FAERS Safety Report 6920781-2 (Version None)
Quarter: 2010Q3

REPORT INFORMATION
  Report Type: 
  Country: None (occurrence: None)
  Receive Date: 20100812
  Receipt Date: 20100810
  Transmission Date: 20110219
  Serious: Yes (Other)
  Sender: FDA-Public Use
  Company Number: US-ASTRAZENECA-2008UW01168

PATIENT
  Age: 684 Month
  Sex: Female
  Weight: 85.3 kg

DRUGS (18)
  1. SEROQUEL [Suspect]
     Indication: BIPOLAR DISORDER
     Route: 048
     Dates: start: 20060222, end: 20060701
  2. SEROQUEL [Suspect]
     Indication: PANIC ATTACK
     Route: 048
     Dates: start: 20060222, end: 20060701
  3. RISPERDAL [Concomitant]
     Indication: BIPOLAR DISORDER
     Dates: start: 20040101, end: 20060222
  4. ZYPREXA [Concomitant]
     Indication: MANIA
     Dates: start: 19960101
  5. SERTRALINE HYDROCHLORIDE [Concomitant]
  6. LORAZEPAM [Concomitant]
  7. TRAZODONE HCL [Concomitant]
  8. DEPAKOTE [Concomitant]
     Dates: start: 19920101
  9. BENICAR [Concomitant]
  10. CLONIDINE HCL [Concomitant]
  11. LEVOTHYROXINE SODIUM [Concomitant]
  12. SIMVASTATIN [Concomitant]
  13. THIORIDAZINE HCL [Concomitant]
  14. ABILIFY [Concomitant]
     Dosage: FOR 2 MONTHS
     Dates: start: 19970101
  15. HALDOL [Concomitant]
     Dosage: 1 WEEK
     Dates: start: 19920101
  16. THORAZINE [Concomitant]
     Dosage: FOR ONE MONTH
     Dates: start: 19790101
  17. PROZAC [Concomitant]
     Dates: start: 19920101, end: 19940101
  18. ZOLOFT [Concomitant]
     Dates: start: 20060101

REACTIONS (9)
  - ADVERSE DRUG REACTION [None]
  - BLOOD CHOLESTEROL INCREASED [None]
  - BLOOD TRIGLYCERIDES INCREASED [None]
  - HYPERLIPIDAEMIA [None]
  - HYPOTHYROIDISM [None]
  - NEUROPATHY PERIPHERAL [None]
  - OBESITY [None]
  - TENOSYNOVITIS [None]
  - TYPE 2 DIABETES MELLITUS [None]
